FAERS Safety Report 21115080 (Version 1)
Quarter: 2022Q3

REPORT INFORMATION
  Report Type: Report from Study
  Country: TR (occurrence: TR)
  Receive Date: 20220721
  Receipt Date: 20220721
  Transmission Date: 20221027
  Serious: Yes (Death, Hospitalization)
  Sender: FDA-Public Use
  Company Number: TR-TEVA-2022-TR-2056797

PATIENT

DRUGS (18)
  1. PREDNISOLONE [Suspect]
     Active Substance: PREDNISOLONE
     Indication: Burkitt^s lymphoma
     Dosage: ON DAYS 1 AND 5 AS A PART OF COURSE AA
     Route: 037
  2. PREDNISOLONE [Suspect]
     Active Substance: PREDNISOLONE
     Dosage: ON DAYS 1 AND 5 AS A PART OF COURSE BB
     Route: 037
  3. DOXORUBICIN [Suspect]
     Active Substance: DOXORUBICIN
     Indication: Burkitt^s lymphoma
     Dosage: FOR 1H ON DAYS 4 AND 5 AS A PART OF COURSE BB
     Route: 042
  4. DEXAMETHASONE [Suspect]
     Active Substance: DEXAMETHASONE
     Indication: Burkitt^s lymphoma
     Dosage: AS A PART OF COURSE AA-ON DAYS 1,2,3,4 AND 5
     Route: 065
  5. DEXAMETHASONE [Suspect]
     Active Substance: DEXAMETHASONE
     Dosage: AS A PART OF COURSE BB- ON DAYS 1,2,3,4 AND 5
     Route: 065
  6. IFOSFAMIDE [Suspect]
     Active Substance: IFOSFAMIDE
     Indication: Burkitt^s lymphoma
     Dosage: FOR 1H ON DAYS 1,2,3,4 AND 5 AS A PART OF COURSE AA
     Route: 042
  7. METHOTREXATE [Suspect]
     Active Substance: METHOTREXATE
     Indication: Burkitt^s lymphoma
     Dosage: 1G/M2/36H (10% DOSE WITHIN 30 MINUTES AND REST OF THE DOSE WITHIN 35.5 HOURS) ON DAY 1 AS A PART ...
     Route: 041
  8. METHOTREXATE [Suspect]
     Active Substance: METHOTREXATE
     Dosage: 1G/M2/36H (10% DOSE WITHIN 30 MINUTES AND REST OF THE DOSE WITHIN 35.5 HOURS) ON DAY 1 AS A PART ...
     Route: 041
  9. METHOTREXATE [Suspect]
     Active Substance: METHOTREXATE
     Dosage: ON DAYS 1 AND 5 AS A PART OF COURSE AA
     Route: 037
  10. METHOTREXATE [Suspect]
     Active Substance: METHOTREXATE
     Dosage: ON DAYS 1 AND 5 AS A PART OF COURSE BB
     Route: 037
  11. CYTARABINE [Suspect]
     Active Substance: CYTARABINE
     Indication: Burkitt^s lymphoma
     Dosage: ON DAYS 1 AND 5 AS A PART OF COURSE AA
     Route: 037
  12. CYTARABINE [Suspect]
     Active Substance: CYTARABINE
     Dosage: ON DAYS 1 AND 5 AS A PART OF COURSE BB
     Route: 037
  13. CYTARABINE [Suspect]
     Active Substance: CYTARABINE
     Dosage: FOR 1 H ON DAYS 4 AND 5 AS A PART OF COURSE AA
     Route: 042
  14. VINCRISTINE [Suspect]
     Active Substance: VINCRISTINE
     Indication: Burkitt^s lymphoma
     Dosage: ON DAY 1 AS A PART OF COURSE AA
     Route: 042
  15. VINCRISTINE [Suspect]
     Active Substance: VINCRISTINE
     Dosage: ON DAY 1 AS A PART OF COURSE BB
     Route: 042
  16. ETOPOSIDE [Suspect]
     Active Substance: ETOPOSIDE
     Indication: Burkitt^s lymphoma
     Dosage: FOR 1H ON DAYS 4 AND 5 AS A PART OF COURSE AA
     Route: 042
  17. CYCLOPHOSPHAMIDE [Suspect]
     Active Substance: CYCLOPHOSPHAMIDE
     Indication: Burkitt^s lymphoma
     Dosage: FOR 1H ON DAYS 1,2,3,4 AND 5 AS A PART OF COURSE BB
     Route: 042
  18. LEUCOVORIN [Concomitant]
     Active Substance: LEUCOVORIN
     Indication: Evidence based treatment
     Dosage: AT 48 AND 54 HOURS AFTER THE BEGINNING OF THE METHOTREXATE INFUSION.
     Route: 065

REACTIONS (2)
  - Sepsis [Fatal]
  - Tumour lysis syndrome [Fatal]
